FAERS Safety Report 9350905 (Version 1)
Quarter: 2013Q2

REPORT INFORMATION
  Report Type: Spontaneous
  Country: JP (occurrence: JP)
  Receive Date: 20130617
  Receipt Date: 20130617
  Transmission Date: 20140414
  Serious: Yes (Other)
  Sender: FDA-Public Use
  Company Number: JP-ASTELLAS-2013US006180

PATIENT
  Age: 65 Year
  Sex: Male

DRUGS (7)
  1. TARCEVA [Suspect]
     Indication: LUNG ADENOCARCINOMA RECURRENT
     Dosage: 150 MG, UID/QD
     Route: 048
     Dates: start: 20120227, end: 20121218
  2. AVASTIN /01555201/ [Suspect]
     Indication: LUNG ADENOCARCINOMA
     Dosage: 15 MG/KG, UID/QD
     Route: 041
     Dates: start: 20121214, end: 20121214
  3. TAXOTERE [Suspect]
     Indication: LUNG ADENOCARCINOMA RECURRENT
     Dosage: 90 MG, UID/QD
     Route: 041
     Dates: start: 20121214, end: 20121214
  4. RINDERON                           /00008501/ [Concomitant]
     Indication: INFLAMMATION
     Dosage: 1.5 MG, UID/QD
     Route: 048
     Dates: start: 201110
  5. METHYCOBAL [Concomitant]
     Indication: HYPOVITAMINOSIS
     Dosage: 1.5 MG, TID
     Route: 048
     Dates: start: 201110
  6. SODIUM VALPROATE [Concomitant]
     Indication: TREMOR
     Dosage: 600 MG, TOTAL DOSE
     Route: 048
     Dates: start: 201202
  7. MAGMITT [Concomitant]
     Indication: CONSTIPATION
     Dosage: 330 MG, TID
     Route: 048
     Dates: start: 20120213

REACTIONS (4)
  - Skin haemorrhage [Recovered/Resolved]
  - Rash [Recovered/Resolved]
  - Rash [Unknown]
  - Fatigue [Unknown]
